FAERS Safety Report 9735828 (Version 2)
Quarter: 2013Q4

REPORT INFORMATION
  Report Type: Spontaneous
  Country: US (occurrence: US)
  Receive Date: 20131206
  Receipt Date: 20131206
  Transmission Date: 20140711
  Serious: Yes (Hospitalization)
  Sender: FDA-Public Use
  Company Number: US-GILEAD-2009-0023859

PATIENT
  Age: 46 Year
  Sex: Female
  Weight: 45.9 kg

DRUGS (13)
  1. LETAIRIS [Suspect]
     Indication: PULMONARY ARTERIAL HYPERTENSION
     Route: 048
     Dates: start: 20080710
  2. DARVON [Concomitant]
  3. XANAX [Concomitant]
  4. LASIX [Concomitant]
  5. LACTULOSE [Concomitant]
  6. PREDNISONE [Concomitant]
  7. COUMADIN [Concomitant]
  8. REVATIO [Concomitant]
  9. METOLAZONE [Concomitant]
  10. SPIRONOLACTONE [Concomitant]
  11. FENTANYL [Concomitant]
  12. LEXAPRO [Concomitant]
  13. REMODULIN [Concomitant]

REACTIONS (1)
  - Fluid retention [Recovering/Resolving]
